FAERS Safety Report 6612073-6 (Version None)
Quarter: 2010Q1

REPORT INFORMATION
  Report Type: 
  Country: None (occurrence: None)
  Receive Date: 20100303
  Receipt Date: 20100223
  Transmission Date: 20100710
  Serious: Yes (Hospitalization, Disabling)
  Sender: FDA-Public Use
  Company Number: B0635364A

PATIENT
  Age: 84 Year
  Sex: Female
  Weight: 70 kg

DRUGS (4)
  1. LAMOTRIGINE [Suspect]
     Indication: PARTIAL SEIZURES
     Dosage: 100MG PER DAY
     Route: 048
     Dates: start: 20091015, end: 20100120
  2. DONEPEZIL HCL [Concomitant]
     Indication: DEMENTIA
     Route: 048
  3. CITALOPRAM [Concomitant]
     Indication: DEPRESSION
     Route: 048
  4. WARFARIN SODIUM [Concomitant]
     Indication: DEEP VEIN THROMBOSIS
     Route: 048

REACTIONS (6)
  - ASTHENIA [None]
  - BLOOD CREATINE PHOSPHOKINASE INCREASED [None]
  - FACIAL PARESIS [None]
  - FALL [None]
  - HIP FRACTURE [None]
  - MYOPATHY [None]
